FAERS Safety Report 5077080-6 (Version None)
Quarter: 2006Q3

REPORT INFORMATION
  Report Type: 
  Country: None (occurrence: None)
  Receive Date: 20060810
  Receipt Date: 20050110
  Transmission Date: 20061208
  Serious: No
  Sender: FDA-Public Use
  Company Number: US-GLAXOSMITHKLINE-A0542408A

PATIENT
  Sex: Male
  Weight: 142.3 kg

DRUGS (5)
  1. PAXIL [Suspect]
     Indication: ANXIETY
     Dosage: 20MG ALTERNATE DAYS
     Route: 048
  2. ZITHROMAX [Concomitant]
  3. NAPROSYN [Concomitant]
     Dosage: 500MG TWICE PER DAY
  4. CLARINEX [Concomitant]
     Dosage: 5MG PER DAY
  5. EFFEXOR XR [Concomitant]
     Dates: start: 20041028

REACTIONS (3)
  - DRUG INEFFECTIVE [None]
  - DRUG WITHDRAWAL SYNDROME [None]
  - SEXUAL DYSFUNCTION [None]
